FAERS Safety Report 8372135 (Version 2)
Quarter: 2013Q1

REPORT INFORMATION
  Report Type: Report from Study
  Country: US (occurrence: US)
  Receive Date: 20120129
  Receipt Date: 20130130
  Transmission Date: 20140127
  Serious: No
  Sender: FDA-Public Use
  Company Number: US-ABBOTT-11P-163-0853653-00

PATIENT
  Sex: Female
  Weight: 104.87 kg

DRUGS (10)
  1. HUMIRA [Suspect]
     Route: 050
     Dates: start: 2011
  2. HUMIRA [Suspect]
  3. TEMAZEPAM [Concomitant]
     Indication: INSOMNIA
  4. SERTRALINE [Concomitant]
     Indication: SEDATIVE THERAPY
  5. SERTRALINE [Concomitant]
     Indication: PANIC ATTACK
  6. NEXIUM [Concomitant]
     Indication: GASTROOESOPHAGEAL REFLUX DISEASE
  7. ATENOLOL [Concomitant]
     Indication: HYPERTENSION
  8. HYDROCHLOROTHIAZIDE [Concomitant]
     Indication: HYPERTENSION
  9. BABY ASPIRIN [Concomitant]
     Indication: PRODUCT USED FOR UNKNOWN INDICATION
  10. CALCIUM [Concomitant]
     Indication: MINERAL SUPPLEMENTATION

REACTIONS (18)
  - Macular degeneration [Not Recovered/Not Resolved]
  - Wrong technique in drug usage process [Not Recovered/Not Resolved]
  - Incorrect dose administered [Not Recovered/Not Resolved]
  - Myalgia [Not Recovered/Not Resolved]
  - Fall [Not Recovered/Not Resolved]
  - Nodule [Not Recovered/Not Resolved]
  - Finger deformity [Not Recovered/Not Resolved]
  - Arthralgia [Not Recovered/Not Resolved]
  - Gait disturbance [Not Recovered/Not Resolved]
  - Arthropathy [Not Recovered/Not Resolved]
  - Ankle deformity [Not Recovered/Not Resolved]
  - Knee deformity [Not Recovered/Not Resolved]
  - Headache [Not Recovered/Not Resolved]
  - Fibromyalgia [Not Recovered/Not Resolved]
  - Drug ineffective [Not Recovered/Not Resolved]
  - Bone pain [Not Recovered/Not Resolved]
  - Arthropathy [Not Recovered/Not Resolved]
  - Rheumatoid arthritis [Not Recovered/Not Resolved]
